FAERS Safety Report 5208511-6 (Version None)
Quarter: 2007Q1

REPORT INFORMATION
  Report Type: 
  Country: None (occurrence: None)
  Receive Date: 20070115
  Receipt Date: 20060511
  Transmission Date: 20070707
  Serious: Yes (Hospitalization)
  Sender: FDA-Public Use
  Company Number: DE-BAXTER-2005BH002735

PATIENT
  Age: 44 Year
  Sex: Female
  Weight: 50 kg

DRUGS (19)
  1. FORANE [Suspect]
     Indication: ANAESTHESIA
     Route: 055
     Dates: start: 20051019, end: 20051019
  2. METHOTREXATE [Concomitant]
  3. PARACETAMOL [Concomitant]
  4. CLONT [Concomitant]
  5. FOLATE SODIUM [Concomitant]
  6. DIPIDOLOR [Concomitant]
     Indication: PAIN
     Route: 042
  7. NOVALGIN /SCH/ [Concomitant]
  8. BENURON [Concomitant]
  9. PASPERTIN [Concomitant]
  10. CLEXANE /GFR/ [Concomitant]
     Route: 058
  11. TAVOR [Concomitant]
  12. PROPOFOL [Concomitant]
     Indication: STUPOR
  13. FENTANYL TRANSDERMAL SYSTEM [Concomitant]
     Indication: STUPOR
  14. ISOFLURANE [Concomitant]
  15. CLONT [Concomitant]
     Indication: STUPOR
  16. CEFAZOLIN [Concomitant]
     Indication: STUPOR
  17. CLINIDIN [Concomitant]
  18. RINGER-LAKTAT [Concomitant]
  19. PERLALGAN [Concomitant]

REACTIONS (4)
  - ACUTE HEPATIC FAILURE [None]
  - DIZZINESS [None]
  - JAUNDICE [None]
  - MALAISE [None]
